FAERS Safety Report 4861684-7 (Version None)
Quarter: 2005Q4

REPORT INFORMATION
  Report Type: 
  Country: None (occurrence: None)
  Receive Date: 20051130
  Receipt Date: 20050906
  Transmission Date: 20060501
  Serious: Yes (Hospitalization, Other)
  Sender: FDA-Public Use
  Company Number: 2005054739

PATIENT
  Age: 14 Year
  Sex: Male
  Weight: 47.1741 kg

DRUGS (8)
  1. ZYVOX [Suspect]
     Indication: STAPHYLOCOCCAL OSTEOMYELITIS
     Dosage: 480 MG (480 MG,Q12HRS INTERVAL: EVERY DAY),INTRAVENOUS
     Route: 042
     Dates: start: 20050207, end: 20050314
  2. ANTIBIOTICS (ANTIBIOTICS) [Concomitant]
  3. DEPAKENE [Concomitant]
  4. NEURONTIN [Concomitant]
  5. SYNTHROID [Concomitant]
  6. GLUCOPHAGE [Concomitant]
  7. CARNITOR (LEVOCARNITINE) [Concomitant]
  8. LACTOBACILLUS ACIDOPHILUS (LACTOBACILLUS ACIDOPHILUS) [Concomitant]

REACTIONS (11)
  - DEHYDRATION [None]
  - DIARRHOEA [None]
  - DYSGEUSIA [None]
  - EATING DISORDER [None]
  - EPSTEIN-BARR VIRUS ANTIBODY POSITIVE [None]
  - INFECTIOUS MONONUCLEOSIS [None]
  - NAUSEA [None]
  - PANCYTOPENIA [None]
  - PHARYNGITIS [None]
  - RETCHING [None]
  - VOMITING [None]
